FAERS Safety Report 6527197-1 (Version None)
Quarter: 2010Q1

REPORT INFORMATION
  Report Type: 
  Country: None (occurrence: None)
  Receive Date: 20100104
  Receipt Date: 20100104
  Transmission Date: 20100710
  Serious: Yes (Life-Threatening)
  Sender: FDA-Public Use
  Company Number: None

PATIENT
  Age: 27 Year
  Sex: Male
  Weight: 68.0396 kg

DRUGS (4)
  1. SINGULAIR [Suspect]
     Indication: ASTHMA
     Dosage: ONE TABLET ONCE DAILY PO
     Route: 048
     Dates: start: 19980101, end: 20060101
  2. SINGULAIR [Suspect]
     Indication: MULTIPLE ALLERGIES
     Dosage: ONE TABLET ONCE DAILY PO
     Route: 048
     Dates: start: 19980101, end: 20060101
  3. SINGULAIR [Suspect]
     Indication: ASTHMA
     Dosage: ONE TABLET ONCE DAILY PO
     Route: 048
     Dates: start: 20081215, end: 20090101
  4. SINGULAIR [Suspect]
     Indication: MULTIPLE ALLERGIES
     Dosage: ONE TABLET ONCE DAILY PO
     Route: 048
     Dates: start: 20081215, end: 20090101

REACTIONS (3)
  - DEPRESSION [None]
  - DRUG DEPENDENCE [None]
  - SUICIDAL IDEATION [None]
